FAERS Safety Report 7631658-1 (Version None)
Quarter: 2011Q3

REPORT INFORMATION
  Report Type: 
  Country: None (occurrence: None)
  Receive Date: 20110725
  Receipt Date: 20110208
  Transmission Date: 20111222
  Serious: Yes (Other)
  Sender: FDA-Public Use
  Company Number: US-BRISTOL-MYERS SQUIBB COMPANY-15536451

PATIENT
  Age: 78 Year
  Sex: Female

DRUGS (6)
  1. DILTIAZEM HCL [Concomitant]
  2. FUROSEMIDE [Concomitant]
  3. SPIRONOLACTONE [Concomitant]
  4. PAROXETINE HCL [Concomitant]
  5. DIOVAN [Concomitant]
  6. WARFARIN SODIUM [Suspect]
     Dosage: THERAPY DURATION:3 OR 4 MONTHS
     Dates: start: 20110101

REACTIONS (3)
  - RASH GENERALISED [None]
  - DRY SKIN [None]
  - HAEMATOCHEZIA [None]
